FAERS Safety Report 17783236 (Version 6)
Quarter: 2020Q4

REPORT INFORMATION
  Report Type: Report from Study
  Country: DE (occurrence: DE)
  Receive Date: 20200513
  Receipt Date: 20201218
  Transmission Date: 20210113
  Serious: Yes (Life-Threatening, Hospitalization)
  Sender: FDA-Public Use
  Company Number: DE-MYLANLABS-2020M1047559

PATIENT
  Age: 64 Year
  Sex: Female
  Weight: 105 kg

DRUGS (15)
  1. TRASTUZUMAB. [Suspect]
     Active Substance: TRASTUZUMAB
     Indication: BREAST CANCER
     Dosage: LAT DOSE RECEIVED BEFORE SAE ON 25/MAR/2020 (702
     Route: 042
     Dates: start: 20200122
  2. CALCIUM [Concomitant]
     Active Substance: CALCIUM
     Indication: HYPOCALCAEMIA
     Dosage: UNK
     Dates: start: 20200416
  3. CARBOPLATIN. [Suspect]
     Active Substance: CARBOPLATIN
     Indication: BREAST CANCER
     Dosage: LAST DOSE RECEIVED BEFORE SAE ON 01/APR/2020 (TOTAL DOSE 294,72 MG)
     Route: 042
     Dates: start: 20200122
  4. CARBOPLATIN. [Suspect]
     Active Substance: CARBOPLATIN
     Dosage: LAST DOSE RECEIVED BEFORE SAE ON 01/APR/2020 (TOTAL DOSE 258.18 MG)
     Route: 065
     Dates: start: 20200325
  5. CARBOPLATIN. [Suspect]
     Active Substance: CARBOPLATIN
     Dosage: LAST DOSE RECEIVED BEFORE SAE ON 01/APR/2020 (TOTAL DOSE 294,72 MG), 29-APR-2020
     Route: 065
     Dates: start: 20200122
  6. PACLITAXEL. [Suspect]
     Active Substance: PACLITAXEL
     Indication: BREAST CANCER
     Dosage: LAST DOSE RECEIVED BEFORE SAE ON 01/APR/2020 (193 MG)
     Route: 065
     Dates: start: 20200122
  7. PACLITAXEL. [Suspect]
     Active Substance: PACLITAXEL
     Dosage: LAST DOSE RECEIVED BEFORE SAE ON 01/APR/2020 (TOTAL
     Route: 042
     Dates: start: 20200325
  8. TORASEMID [Concomitant]
     Active Substance: TORSEMIDE
     Indication: HYPERTENSION
     Dosage: UNK
     Dates: start: 19850101, end: 20200417
  9. AMLODIPIN                          /00972401/ [Concomitant]
     Active Substance: AMLODIPINE BESYLATE
     Indication: HYPERTENSION
     Dosage: UNK
     Dates: start: 19850101, end: 20200417
  10. METOPROLOL. [Concomitant]
     Active Substance: METOPROLOL
     Dosage: UNK
     Dates: start: 20200505
  11. TAXOL [Suspect]
     Active Substance: PACLITAXEL
     Indication: BREAST CANCER
     Dosage: LAST DOSE RECEIVED BEFORE SAE ON (193 MG)
     Route: 042
     Dates: start: 20200122
  12. ATEZOLIZUMAB. [Suspect]
     Active Substance: ATEZOLIZUMAB
     Indication: BREAST CANCER
     Dosage: LAST DOSE RECEIVED BEFOR SAE ON 25/MAR/2020, 22-APR-2020
     Route: 041
     Dates: start: 20200122
  13. METOPROLOL. [Concomitant]
     Active Substance: METOPROLOL
     Indication: HYPERTENSION
     Dosage: UNK
     Dates: start: 19850101, end: 20200418
  14. IRBESARTAN. [Concomitant]
     Active Substance: IRBESARTAN
     Indication: HYPERTENSION
     Dosage: UNK
     Dates: start: 19850101, end: 20200417
  15. PERTUZUMAB. [Suspect]
     Active Substance: PERTUZUMAB
     Indication: BREAST CANCER
     Dosage: LAST DOSE RECEIVED BEFORE SAE ON 25/MAR/2020 (TOTAL DOSE 420 MG), 22-APR-2020
     Route: 042
     Dates: start: 20200122

REACTIONS (7)
  - Gastrointestinal disorder [Recovered/Resolved]
  - General physical health deterioration [Not Recovered/Not Resolved]
  - Anaemia [Recovered/Resolved]
  - Diarrhoea [Recovered/Resolved]
  - Hypotension [Recovered/Resolved]
  - Decreased appetite [Recovered/Resolved]
  - Cardiovascular disorder [Recovered/Resolved]

NARRATIVE: CASE EVENT DATE: 20200409
